FAERS Safety Report 4553008-X (Version None)
Quarter: 2005Q1

REPORT INFORMATION
  Report Type: 
  Country: None (occurrence: None)
  Receive Date: 20050112
  Receipt Date: 20050112
  Transmission Date: 20050727
  Serious: Yes (Other)
  Sender: FDA-Public Use
  Company Number: None

PATIENT
  Age: 53 Year
  Sex: Male
  Weight: 97.977 kg

DRUGS (1)
  1. MIXED AMPHETAMINE SALT   EON [Suspect]
     Indication: ATTENTION DEFICIT/HYPERACTIVITY DISORDER
     Dosage: 10 MG PO QD
     Route: 048
     Dates: start: 20021030

REACTIONS (1)
  - DRUG EFFECT DECREASED [None]
